FAERS Safety Report 4477587-6 (Version None)
Quarter: 2004Q3

REPORT INFORMATION
  Report Type: 
  Country: None (occurrence: None)
  Receive Date: 20040923
  Receipt Date: 20040802
  Transmission Date: 20050211
  Serious: Yes (Other)
  Sender: FDA-Public Use
  Company Number: USA040874268

PATIENT
  Age: 84 Year
  Sex: Female
  Weight: 64 kg

DRUGS (9)
  1. RALOXIFENE HCL [Suspect]
     Indication: OSTEOPOROSIS
     Dosage: 60 MG/1 DAY
     Dates: start: 20040101, end: 20040713
  2. FORTEO [Suspect]
     Indication: OSTEOPOROSIS
     Dosage: 20 UG/1 DAY
     Dates: start: 20040714, end: 20040731
  3. DITROPAN [Concomitant]
  4. ATACAND HCT [Concomitant]
  5. CARDURA [Concomitant]
  6. NEXIUM [Concomitant]
  7. VITAMIN B-12 [Concomitant]
  8. HYDROCHLOROTHIAZIDE/TRIAMTERENE [Concomitant]
  9. IRON [Concomitant]

REACTIONS (8)
  - BLADDER DISORDER [None]
  - BONE DENSITY DECREASED [None]
  - FALL [None]
  - HYPOTENSION [None]
  - MACULAR DEGENERATION [None]
  - MUSCLE CRAMP [None]
  - PAIN [None]
  - VISUAL DISTURBANCE [None]
